FAERS Safety Report 19350226 (Version 1)
Quarter: 2021Q2

REPORT INFORMATION
  Report Type: Spontaneous
  Country: US (occurrence: US)
  Receive Date: 20210601
  Receipt Date: 20210601
  Transmission Date: 20210717
  Serious: Yes (Other)
  Sender: FDA-Public Use
  Company Number: None

PATIENT
  Age: 75 Year
  Sex: Female

DRUGS (10)
  1. MELOXICAM. [Concomitant]
     Active Substance: MELOXICAM
  2. MECLIZINE [Concomitant]
     Active Substance: MECLIZINE HYDROCHLORIDE
  3. VITAMIN B12 [Concomitant]
     Active Substance: CYANOCOBALAMIN
  4. EZETIMIBE. [Concomitant]
     Active Substance: EZETIMIBE
  5. HYDRALAZINE [Concomitant]
     Active Substance: HYDRALAZINE HYDROCHLORIDE
  6. LOSARTAN. [Concomitant]
     Active Substance: LOSARTAN
  7. MYRBETRIQ [Suspect]
     Active Substance: MIRABEGRON
     Dosage: ?          QUANTITY:1 TABLET(S);?
     Dates: start: 20210311, end: 20210311
  8. SEROQUEL [Concomitant]
     Active Substance: QUETIAPINE FUMARATE
  9. NIFEDIPINE. [Concomitant]
     Active Substance: NIFEDIPINE
  10. LEVOTHYROXINE. [Concomitant]
     Active Substance: LEVOTHYROXINE

REACTIONS (1)
  - Blood pressure increased [None]

NARRATIVE: CASE EVENT DATE: 20210311
